FAERS Safety Report 7493692-4 (Version None)
Quarter: 2011Q2

REPORT INFORMATION
  Report Type: 
  Country: None (occurrence: None)
  Receive Date: 20110520
  Receipt Date: 20110519
  Transmission Date: 20111010
  Serious: Yes (Other)
  Sender: FDA-Public Use
  Company Number: DE-SANOFI-AVENTIS-2011SA031016

PATIENT
  Sex: Female

DRUGS (4)
  1. BISOPROLOL FUMARATE [Concomitant]
     Route: 065
  2. CANDESARTAN CILEXETIL/HYDROCHLOROTHIAZIDE [Concomitant]
     Route: 065
  3. MULTAQ [Suspect]
     Indication: ATRIAL FIBRILLATION
     Route: 048
  4. ACETYL SALICYLIC ACID USP BAT [Concomitant]
     Route: 065

REACTIONS (1)
  - ATRIAL FIBRILLATION [None]
